FAERS Safety Report 9824175 (Version 1)
Quarter: 2014Q1

REPORT INFORMATION
  Report Type: Spontaneous
  Country: US (occurrence: US)
  Receive Date: 20140116
  Receipt Date: 20140116
  Transmission Date: 20141002
  Serious: Yes (Hospitalization)
  Sender: FDA-Public Use
  Company Number: US-GLAXOSMITHKLINE-A1056988A

PATIENT
  Age: 79 Year
  Sex: Male

DRUGS (1)
  1. VOTRIENT [Suspect]
     Indication: RENAL NEOPLASM
     Dosage: 800MG PER DAY
     Route: 065
     Dates: start: 20131209

REACTIONS (4)
  - Haemorrhage [Unknown]
  - Mechanical ventilation [Unknown]
  - Contusion [Unknown]
  - Haemorrhage [Unknown]
